FAERS Safety Report 7432752-0 (Version None)
Quarter: 2011Q2

REPORT INFORMATION
  Report Type: 
  Country: None (occurrence: None)
  Receive Date: 20110422
  Receipt Date: 20110414
  Transmission Date: 20111010
  Serious: Yes (Other)
  Sender: FDA-Public Use
  Company Number: A0923868A

PATIENT
  Age: 15 Year
  Sex: Female
  Weight: 44.5 kg

DRUGS (5)
  1. PROMACTA [Suspect]
     Dosage: 50MG PER DAY
     Route: 048
     Dates: end: 20110127
  2. OCP [Concomitant]
  3. IMMUNE GLOBULIN INTRAVENOUS (HUMAN) [Concomitant]
     Indication: IDIOPATHIC THROMBOCYTOPENIC PURPURA
  4. TRUVADA [Concomitant]
     Indication: HIV INFECTION
  5. ISENTRESS [Concomitant]

REACTIONS (6)
  - ABORTION SPONTANEOUS [None]
  - DRUG EXPOSURE DURING PREGNANCY [None]
  - ANAEMIA [None]
  - PLATELET COUNT DECREASED [None]
  - GINGIVAL BLEEDING [None]
  - UPPER RESPIRATORY TRACT INFECTION [None]
